FAERS Safety Report 7715647-4 (Version None)
Quarter: 2011Q3

REPORT INFORMATION
  Report Type: 
  Country: None (occurrence: None)
  Receive Date: 20110823
  Receipt Date: 20110810
  Transmission Date: 20111222
  Serious: Yes (Other)
  Sender: FDA-Public Use
  Company Number: 1000022935

PATIENT
  Age: 82 Year
  Sex: Male
  Weight: 70 kg

DRUGS (12)
  1. CONTROLOC (PANTOPRAZOLE) (PANTOPRAZOLE) [Concomitant]
  2. DONEPEX (DONEPEZIL HYDROCHLORIDE) (DONEPEZIL HYDROCHLORIDE) [Concomitant]
  3. EFFOX LONG (ISOSORBIDE MONONITRATE) (ISOSORBIDE MONONITRATE) [Concomitant]
  4. PROSCAR (FINASTERIDE) (FINASTERIDE) [Concomitant]
  5. OMNIC (TAMSULOSIN HYDROCHLORIDE) (TAMSULOSIN) [Concomitant]
  6. FOSAMAX [Concomitant]
  7. KREON 25000 (PANCREATIN)(PANCREATIN) [Concomitant]
  8. MEMANTINE [Suspect]
     Dosage: 2.5 MG (2.5 MG, 1 IN 1 D), ORAL
     Route: 048
  9. POLFILIN PROLONG (PENTOXIFYLLINE) (PENTOXIFYLLINE) [Concomitant]
  10. VENLECTINE (VENLAFAXINE) (VENLAFAXINE) [Concomitant]
  11. BETO ZK (METOPROLOL) (METOPROLOL) [Concomitant]
  12. PREDUCTAL MR (TRIMETAZIDINE DIHYDROCHLORIDE) (TRIMETAZIDINE DIHYDROCHL [Concomitant]

REACTIONS (3)
  - ERYTHEMA [None]
  - THROMBOCYTOPENIA [None]
  - HAEMORRHAGIC DIATHESIS [None]
